FAERS Safety Report 6522204-4 (Version None)
Quarter: 2009Q4

REPORT INFORMATION
  Report Type: 
  Country: None (occurrence: None)
  Receive Date: 20091229
  Receipt Date: 20091229
  Transmission Date: 20100525
  Serious: No
  Sender: FDA-Public Use
  Company Number: None

PATIENT
  Age: 67 Year
  Sex: Male
  Weight: 82.4 kg

DRUGS (10)
  1. LISINOPRIL [Suspect]
     Indication: HYPERTENSION
     Dosage: 40 MG DAILY PO
     Route: 048
     Dates: start: 20091113
  2. SPIRONOLACTONE [Suspect]
     Indication: HYPERTENSION
     Dosage: 50 MG DAILY PO
     Route: 048
     Dates: start: 20091113
  3. AMLODIPINE [Concomitant]
  4. NEBIVOLOL [Concomitant]
  5. LASIX [Concomitant]
  6. SPIRIVA [Concomitant]
  7. SIMVASTATIN [Concomitant]
  8. ADVAIR DISKUS 100/50 [Concomitant]
  9. DEMENTIA PATCH [Concomitant]
  10. RIVASTIGMINE [Concomitant]

REACTIONS (4)
  - BLOOD CREATININE INCREASED [None]
  - BLOOD POTASSIUM INCREASED [None]
  - FALL [None]
  - ORTHOSTATIC HYPOTENSION [None]
